FAERS Safety Report 6790592-X (Version None)
Quarter: 2010Q2

REPORT INFORMATION
  Report Type: 
  Country: None (occurrence: None)
  Receive Date: 20100624
  Receipt Date: 20100617
  Transmission Date: 20101027
  Serious: Yes (Other)
  Sender: FDA-Public Use
  Company Number: US-B.I. PHARMACEUTICALS,INC./RIDGEFIELD-2010-BR-00700BR

PATIENT

DRUGS (2)
  1. NEVIRAPINE [Suspect]
     Indication: PROPHYLAXIS AGAINST HIV INFECTION
  2. EFAVIRENZ [Suspect]
     Indication: PROPHYLAXIS AGAINST HIV INFECTION
     Dosage: NR

REACTIONS (1)
  - HEPATOTOXICITY [None]
